FAERS Safety Report 6384451-4 (Version None)
Quarter: 2009Q4

REPORT INFORMATION
  Report Type: 
  Country: None (occurrence: None)
  Receive Date: 20091001
  Receipt Date: 20090923
  Transmission Date: 20100525
  Serious: No
  Sender: FDA-Public Use
  Company Number: US-B.I. PHARMACEUTICALS,INC./RIDGEFIELD-2009-BP-11249BP

PATIENT
  Sex: Female

DRUGS (3)
  1. SPIRIVA [Suspect]
     Indication: CHRONIC OBSTRUCTIVE PULMONARY DISEASE
     Dosage: 18 MCG
     Route: 055
     Dates: start: 20090401
  2. SYNTHROID [Concomitant]
     Indication: HYPOTHYROIDISM
  3. PREMARIN [Concomitant]
     Indication: OESTROGEN REPLACEMENT THERAPY

REACTIONS (5)
  - DYSPEPSIA [None]
  - FUNGAL INFECTION [None]
  - POLLAKIURIA [None]
  - RASH [None]
  - TONGUE DISORDER [None]
